FAERS Safety Report 4277440-7 (Version None)
Quarter: 2004Q1

REPORT INFORMATION
  Report Type: 
  Country: None (occurrence: None)
  Receive Date: 20040122
  Receipt Date: 20040120
  Transmission Date: 20041129
  Serious: Yes (Death, Life-Threatening, Hospitalization)
  Sender: FDA-Public Use
  Company Number: DE-BRISTOL-MYERS SQUIBB COMPANY-12480869

PATIENT
  Age: 56 Year
  Sex: Male

DRUGS (2)
  1. CISPLATIN [Suspect]
     Indication: SMALL CELL LUNG CANCER STAGE UNSPECIFIED
     Dosage: 75 MG/M2
     Route: 042
     Dates: start: 20031223, end: 20031223
  2. TOPOTECAN HCL [Suspect]
     Indication: SMALL CELL LUNG CANCER STAGE UNSPECIFIED
     Dosage: 1 MG/M2
     Route: 042
     Dates: start: 20031219, end: 20031223

REACTIONS (4)
  - GRANULOCYTOPENIA [None]
  - PNEUMONIA [None]
  - PSEUDOMONAS INFECTION [None]
  - RESPIRATORY FAILURE [None]
